FAERS Safety Report 9510606 (Version 1)
Quarter: 2013Q3

REPORT INFORMATION
  Report Type: Spontaneous
  Country: US (occurrence: US)
  Receive Date: 20130909
  Receipt Date: 20130909
  Transmission Date: 20140515
  Serious: Yes (Other)
  Sender: FDA-Public Use
  Company Number: US-ACTAVIS-2013-15456

PATIENT
  Age: 44 Year
  Sex: Male
  Weight: 68 kg

DRUGS (1)
  1. CARBIDOPA/LEVODOPA (AELLC) [Suspect]
     Indication: PARKINSON^S DISEASE
     Dosage: 4 TABLETS, TID ON AN EMPTY STOMACH
     Route: 048
     Dates: start: 201302

REACTIONS (6)
  - Dyskinesia [Not Recovered/Not Resolved]
  - Joint stiffness [Not Recovered/Not Resolved]
  - Trismus [Not Recovered/Not Resolved]
  - Muscle tightness [Not Recovered/Not Resolved]
  - Vocal cord disorder [Not Recovered/Not Resolved]
  - Speech disorder [Not Recovered/Not Resolved]
